FAERS Safety Report 5249047-6 (Version None)
Quarter: 2007Q1

REPORT INFORMATION
  Report Type: 
  Country: None (occurrence: None)
  Receive Date: 20070228
  Receipt Date: 20060619
  Transmission Date: 20070707
  Serious: No
  Sender: FDA-Public Use
  Company Number: US-GLAXOSMITHKLINE-A0609557A

PATIENT
  Age: 43 Year
  Sex: Female

DRUGS (4)
  1. VALTREX [Suspect]
     Dosage: 500MG TWICE PER DAY
     Route: 048
     Dates: start: 19970101
  2. VIT B12 [Concomitant]
  3. OMEGA 3 FISH OIL [Concomitant]
  4. VITAMIN COMPLEX [Concomitant]

REACTIONS (1)
  - ARTHRALGIA [None]
